FAERS Safety Report 5278867-7 (Version None)
Quarter: 2007Q1

REPORT INFORMATION
  Report Type: 
  Country: None (occurrence: None)
  Receive Date: 20070328
  Receipt Date: 20070320
  Transmission Date: 20070707
  Serious: Yes (Life-Threatening, Other)
  Sender: FDA-Public Use
  Company Number: 2007SE01349

PATIENT
  Age: 86 Year
  Sex: Female
  Weight: 65 kg

DRUGS (9)
  1. MEPIVACAINE HCL [Suspect]
     Indication: ANAESTHESIA
     Route: 053
  2. ROPIVACAINE [Suspect]
     Indication: ANAESTHESIA
     Route: 053
  3. DICUMAROL [Concomitant]
  4. LMWH [Concomitant]
  5. AMINOPHYLLINE [Concomitant]
  6. ALBUTEROL [Concomitant]
  7. CAPTOPRIL [Concomitant]
  8. TRANSDERMAL NITRODERIVATES [Concomitant]
  9. DIGITALIS TAB [Concomitant]

REACTIONS (4)
  - BLOOD PRESSURE SYSTOLIC DECREASED [None]
  - BRADYCARDIA [None]
  - CARDIAC ARREST [None]
  - OXYGEN SATURATION DECREASED [None]
